FAERS Safety Report 10337569 (Version 1)
Quarter: 2014Q3

REPORT INFORMATION
  Report Type: Spontaneous
  Country: FR (occurrence: FR)
  Receive Date: 20140724
  Receipt Date: 20140724
  Transmission Date: 20150326
  Serious: Yes (Hospitalization)
  Sender: FDA-Public Use
  Company Number: FR-MERCK-1407FRA009362

PATIENT
  Age: 39 Year
  Sex: Male

DRUGS (3)
  1. NORSET [Suspect]
     Active Substance: MIRTAZAPINE
     Dosage: 150 MG, UNIQUE INTAKE
     Route: 048
     Dates: start: 20140301, end: 20140301
  2. TERCIAN [Suspect]
     Active Substance: CYAMEMAZINE
     Dosage: 250 MG, ONCE
     Route: 048
     Dates: start: 20140301, end: 20140301
  3. SERESTA [Suspect]
     Active Substance: OXAZEPAM
     Dosage: 300 MG, UNIQUE INTAKE
     Route: 048
     Dates: start: 20140301, end: 20140301

REACTIONS (4)
  - Pulmonary embolism [Recovering/Resolving]
  - Rhabdomyolysis [Recovering/Resolving]
  - Pneumonia aspiration [Recovering/Resolving]
  - Renal failure acute [Recovered/Resolved]

NARRATIVE: CASE EVENT DATE: 20140306
